FAERS Safety Report 19850404 (Version 2)
Quarter: 2021Q3

REPORT INFORMATION
  Report Type: Spontaneous
  Country: US (occurrence: US)
  Receive Date: 20210918
  Receipt Date: 20210920
  Transmission Date: 20211014
  Serious: No
  Sender: FDA-Public Use
  Company Number: US-JNJFOC-20210912612

PATIENT
  Sex: Male

DRUGS (1)
  1. TREMFYA [Suspect]
     Active Substance: GUSELKUMAB
     Indication: PRODUCT USED FOR UNKNOWN INDICATION
     Route: 065

REACTIONS (7)
  - Head injury [Unknown]
  - Dizziness [Unknown]
  - Poor quality product administered [Unknown]
  - Fall [Unknown]
  - Product storage error [Unknown]
  - Drug ineffective [Unknown]
  - Confusional state [Unknown]
